FAERS Safety Report 21271031 (Version 2)
Quarter: 2022Q3

REPORT INFORMATION
  Report Type: Spontaneous
  Country: US (occurrence: US)
  Receive Date: 20220830
  Receipt Date: 20220902
  Transmission Date: 20221027
  Serious: No
  Sender: FDA-Public Use
  Company Number: US-BoehringerIngelheim-2022-BI-189596

PATIENT
  Sex: Male

DRUGS (2)
  1. JARDIANCE [Suspect]
     Active Substance: EMPAGLIFLOZIN
     Indication: Type 2 diabetes mellitus
  2. BUMETANIDE [Concomitant]
     Active Substance: BUMETANIDE
     Indication: Oedema
     Dosage: 0.5MG

REACTIONS (6)
  - Glycosylated haemoglobin increased [Unknown]
  - Urinary incontinence [Unknown]
  - Oedema peripheral [Unknown]
  - Blood glucose increased [Unknown]
  - Abnormal loss of weight [Unknown]
  - Expired product administered [Unknown]
